FAERS Safety Report 4345183-7 (Version None)
Quarter: 2004Q2

REPORT INFORMATION
  Report Type: 
  Country: None (occurrence: None)
  Receive Date: 20040421
  Receipt Date: 20040421
  Transmission Date: 20050107
  Serious: No
  Sender: FDA-Public Use
  Company Number: None

PATIENT
  Sex: Female
  Weight: 15.9 kg

DRUGS (4)
  1. TWICE -A-DAY 12 HOUR NASAL SPRAY MFGD. BY PROPHARMA INC [Suspect]
     Indication: NASAL DECONGESTION THERAPY
     Dosage: SPRAY BEFORE BRONCOSCOPY
     Dates: start: 20040322
  2. CEFTAZIDIME [Suspect]
  3. TOBRAMYCIN [Suspect]
  4. AMOXICILLIN [Suspect]

REACTIONS (1)
  - BACTERIAL INFECTION [None]
